FAERS Safety Report 6141838-2 (Version None)
Quarter: 2009Q2

REPORT INFORMATION
  Report Type: 
  Country: None (occurrence: None)
  Receive Date: 20090402
  Receipt Date: 20090324
  Transmission Date: 20091009
  Serious: Yes (Disabling, Other)
  Sender: FDA-Public Use
  Company Number: AU-PFIZER INC-2008083190

PATIENT

DRUGS (1)
  1. CHAMPIX [Suspect]
     Indication: SMOKING CESSATION THERAPY
     Dosage: 1 MG, 1X/DAY
     Route: 048

REACTIONS (5)
  - DIZZINESS [None]
  - FALL [None]
  - HYPOKINESIA [None]
  - ORTHOSTATIC HYPOTENSION [None]
  - PRESYNCOPE [None]
